FAERS Safety Report 9259053 (Version 3)
Quarter: 2013Q4

REPORT INFORMATION
  Report Type: Spontaneous
  Country: IT (occurrence: IT)
  Receive Date: 20130426
  Receipt Date: 20131011
  Transmission Date: 20140711
  Serious: Yes (Hospitalization)
  Sender: FDA-Public Use
  Company Number: IT-ASTRAZENECA-2013SE26747

PATIENT
  Age: 29225 Day
  Sex: Male

DRUGS (8)
  1. ATENOLOL [Suspect]
     Route: 048
     Dates: start: 1997, end: 20130316
  2. ATENOLOL [Suspect]
     Route: 048
     Dates: start: 20130323, end: 20130323
  3. ATENOLOL [Suspect]
     Route: 048
  4. TRIATEC [Concomitant]
  5. KANRENOL [Concomitant]
  6. LASIX [Concomitant]
  7. VENITRIN [Concomitant]
     Dosage: 5 MG/24 H TRANSDERMAL PATCH
     Route: 062
  8. SINTROM [Concomitant]

REACTIONS (8)
  - Palpitations [Recovered/Resolved]
  - Gravitational oedema [Unknown]
  - Bradycardia [Recovered/Resolved]
  - Hypotension [Recovered/Resolved]
  - Asthenia [Recovered/Resolved]
  - Cardiac failure [Unknown]
  - Dyspnoea [Unknown]
  - Intentional drug misuse [Recovered/Resolved]
